FAERS Safety Report 13031865 (Version 2)
Quarter: 2017Q2

REPORT INFORMATION
  Report Type: Spontaneous
  Country: US (occurrence: US)
  Receive Date: 20161215
  Receipt Date: 20170622
  Transmission Date: 20170830
  Serious: No
  Sender: FDA-Public Use
  Company Number: US-PFIZER INC-2016301738

PATIENT
  Age: 66 Year
  Sex: Male
  Weight: 123.9 kg

DRUGS (24)
  1. SULFASALAZINE. [Concomitant]
     Active Substance: SULFASALAZINE
     Indication: RHEUMATOID ARTHRITIS
     Dosage: 1500 MG, 2X/DAY (THREE TABLETS BY MOUTH TWICE DAILY)
     Route: 048
     Dates: start: 20150602
  2. RAMIPRIL. [Concomitant]
     Active Substance: RAMIPRIL
     Indication: ESSENTIAL HYPERTENSION
     Dosage: 7.5 MG, 1X/DAY (TAKE THREE CAPSULES BY MOUTH ONCE DAILY)
     Route: 048
     Dates: start: 20100727
  3. ORENCIA [Concomitant]
     Active Substance: ABATACEPT
     Dosage: UNK(750 MG IV AT WEEKS 0, 2, 4 THAN Q MONTHLY)
     Route: 042
     Dates: start: 20160920
  4. LYRICA [Suspect]
     Active Substance: PREGABALIN
     Dosage: 200 MG, 2X/DAY
     Route: 048
     Dates: start: 20160609
  5. CLOPIDOGREL BISULFATE. [Concomitant]
     Active Substance: CLOPIDOGREL BISULFATE
     Indication: CORONARY ARTERY STENOSIS
     Dosage: 75 MG, DAILY
     Route: 048
     Dates: start: 20081017
  6. GABAPENTIN. [Concomitant]
     Active Substance: GABAPENTIN
     Indication: DIABETIC NEUROPATHY
     Dosage: 1200 MG, 3X/DAY (TWO TABLETS BY MOUTH THREE TIMES DAILY)
     Route: 048
     Dates: start: 20150623
  7. HYDROCODONE BITARTRATE AND ACETAMINOPHEN [Concomitant]
     Active Substance: ACETAMINOPHEN\HYDROCODONE BITARTRATE
     Indication: RHEUMATOID ARTHRITIS
  8. PREDNISONE. [Concomitant]
     Active Substance: PREDNISONE
     Indication: RHEUMATOID ARTHRITIS
     Dosage: 7.5 MG, DAILY (TAKE ONE-HALF TABLET BY MOUTH DAILY WITH 2.5MG TABLET FOR TOTAL DOSE OF 7.5MG DAILY)
     Route: 048
     Dates: start: 20151202
  9. NOVOLIN R [Concomitant]
     Active Substance: INSULIN HUMAN
     Dosage: 100 IU/ML, UNK
  10. PREDNISONE. [Concomitant]
     Active Substance: PREDNISONE
     Dosage: 5 MG, TAKE 1 AND 1/2 TAB DAILY
     Route: 048
     Dates: start: 20160812
  11. HYDROCODONE BITARTRATE AND ACETAMINOPHEN [Concomitant]
     Active Substance: ACETAMINOPHEN\HYDROCODONE BITARTRATE
     Indication: PAIN
     Dosage: UNK, AS NEEDED [HYDROCODONE 10MG][ACETAMINOPHEN- 325MG] (1 TO 2 TABLETS EVERY 6 HOURS)
     Route: 048
     Dates: start: 20100727
  12. ACARBOSE. [Concomitant]
     Active Substance: ACARBOSE
     Indication: TYPE 2 DIABETES MELLITUS
     Dosage: 100 MG, 2X/DAY (WITH THE FIRST BITE OF EACH MAIN MEAL)
     Route: 048
     Dates: start: 20100727
  13. PRAVASTATIN SODIUM. [Concomitant]
     Active Substance: PRAVASTATIN SODIUM
     Dosage: 40 MG, 1X/DAY(TAKE ONE TABLET BY MOUTH AT BEDTIME)
     Route: 048
     Dates: start: 20100627
  14. HYDROXYCHLOROQUINE SULFATE. [Concomitant]
     Active Substance: HYDROXYCHLOROQUINE SULFATE
     Dosage: 200 MG, 2X/DAY
     Route: 048
     Dates: start: 20151214
  15. RAMIPRIL. [Concomitant]
     Active Substance: RAMIPRIL
     Dosage: 2.5 MG, 3X/DAY
     Route: 048
     Dates: start: 20100727
  16. PRAVACHOL [Concomitant]
     Active Substance: PRAVASTATIN SODIUM
     Indication: CORONARY ARTERY STENOSIS
     Dosage: 40 MG, 1X/DAY (AT BEDTIME)
     Route: 048
     Dates: start: 20100727
  17. METHOTREXATE. [Concomitant]
     Active Substance: METHOTREXATE
     Indication: RHEUMATOID ARTHRITIS
     Dosage: 25 MG, WEEKLY (10 TABLETS BY MOUTH EVERY WEEK)
     Route: 048
  18. PREDNISONE. [Concomitant]
     Active Substance: PREDNISONE
     Dosage: 2.5 MG, 1X/DAY
     Route: 048
     Dates: start: 20150602
  19. METFORMIN HCL [Concomitant]
     Active Substance: METFORMIN HYDROCHLORIDE
     Indication: TYPE 2 DIABETES MELLITUS
     Dosage: 500 MG, 2X/DAY
     Route: 048
     Dates: start: 20151019
  20. LYRICA [Suspect]
     Active Substance: PREGABALIN
     Indication: DIABETIC NEUROPATHY
     Dosage: 100 MG, UNK
     Route: 048
  21. LORATADINE. [Concomitant]
     Active Substance: LORATADINE
     Dosage: 10 MG, DAILY
     Route: 048
     Dates: start: 20110117
  22. PLAQUENIL [Concomitant]
     Active Substance: HYDROXYCHLOROQUINE SULFATE
     Indication: RHEUMATOID ARTHRITIS
     Dosage: 200 MG, 2X/DAY
     Route: 048
     Dates: start: 20151214
  23. NOVOLIN N [Concomitant]
     Active Substance: INSULIN HUMAN
     Dosage: 46 IU, UNK
     Route: 058
     Dates: start: 20160712
  24. ASPIRIN. [Concomitant]
     Active Substance: ASPIRIN
     Dosage: 325 MG, DAILY
     Route: 048
     Dates: start: 20100331

REACTIONS (3)
  - Blood glucose increased [Unknown]
  - Arthritis [Unknown]
  - Prescribed overdose [Unknown]
